FAERS Safety Report 14990045 (Version 1)
Quarter: 2018Q2

REPORT INFORMATION
  Report Type: Spontaneous
  Country: US (occurrence: US)
  Receive Date: 20180608
  Receipt Date: 20180608
  Transmission Date: 20180711
  Serious: No
  Sender: FDA-Public Use
  Company Number: US-ROCHE-2014638

PATIENT
  Sex: Female

DRUGS (1)
  1. ACTEMRA [Suspect]
     Active Substance: TOCILIZUMAB
     Indication: PSORIASIS
     Dosage: ONGOING
     Route: 058
     Dates: start: 20170714

REACTIONS (3)
  - Foot fracture [Unknown]
  - Intentional product use issue [Unknown]
  - Off label use [Unknown]
